FAERS Safety Report 5052109-X (Version None)
Quarter: 2006Q3

REPORT INFORMATION
  Report Type: 
  Country: None (occurrence: None)
  Receive Date: 20060711
  Receipt Date: 20060623
  Transmission Date: 20061208
  Serious: Yes (Death, Hospitalization)
  Sender: FDA-Public Use
  Company Number: FR200606004937

PATIENT
  Age: 84 Year
  Sex: Female
  Weight: 45 kg

DRUGS (13)
  1. ZYPREXA [Suspect]
     Indication: MANIA
     Dosage: ORAL
     Route: 048
     Dates: start: 20060306, end: 20060317
  2. DEPAKOTE [Concomitant]
  3. CELLCEPT     /USA/(MYCOPHENOLATE MOFETIL) [Concomitant]
  4. CORTANCYL    /FRA/(PREDNISONE) [Concomitant]
  5. IMOVANE       /UNK/ (ZOPICLONE) [Concomitant]
  6. LEXOMIL (BROMAZEPAM) [Concomitant]
  7. DIGOXIN [Concomitant]
  8. ACETAMINOPHEN [Concomitant]
  9. ASPEGIC 1000 [Concomitant]
  10. CALCIDOSE VITAMINE D (CALCIUM CARBONATE, COLECALCIFEROL) [Concomitant]
  11. FOSAMAX   /ITA/(ALENDRONATE SODIUM) [Concomitant]
  12. TRAMADOL HCL [Concomitant]
  13. BISOPROLOL FUMARATE [Concomitant]

REACTIONS (8)
  - AGGRESSION [None]
  - CYTOMEGALOVIRUS GASTROENTERITIS [None]
  - LACRIMATION INCREASED [None]
  - LOGORRHOEA [None]
  - NECROSIS ISCHAEMIC [None]
  - PROCTITIS [None]
  - RECTAL HAEMORRHAGE [None]
  - SEPSIS [None]
